FAERS Safety Report 9566188 (Version 1)
Quarter: 2013Q3

REPORT INFORMATION
  Report Type: Spontaneous
  Country: US (occurrence: US)
  Receive Date: 20130930
  Receipt Date: 20130930
  Transmission Date: 20140515
  Serious: No
  Sender: FDA-Public Use
  Company Number: US-ASTRAZENECA-2013SE57374

PATIENT
  Age: 81 Year
  Sex: Male

DRUGS (7)
  1. BRILINTA [Suspect]
     Indication: ACUTE CORONARY SYNDROME
     Route: 048
     Dates: start: 201307, end: 201307
  2. BRILINTA [Suspect]
     Indication: STENT PLACEMENT
     Route: 048
     Dates: start: 201307, end: 201307
  3. UNSPECIFIED BETA BLOCKER [Concomitant]
  4. UNSPECIFIED ACE INHIBITOR [Concomitant]
  5. ASPIRIN [Concomitant]
  6. UNSPECIFIED ANTIPLATELET [Concomitant]
  7. UNSPECIFIED STATIN [Concomitant]

REACTIONS (2)
  - Abdominal discomfort [Unknown]
  - Abdominal pain upper [Unknown]
